FAERS Safety Report 5466802-8 (Version None)
Quarter: 2007Q3

REPORT INFORMATION
  Report Type: 
  Country: None (occurrence: None)
  Receive Date: 20070925
  Receipt Date: 20070917
  Transmission Date: 20080115
  Serious: Yes (Other)
  Sender: FDA-Public Use
  Company Number: CA-JNJFOC-20070802672

PATIENT
  Sex: Female
  Weight: 62 kg

DRUGS (10)
  1. REMICADE [Suspect]
     Route: 042
  2. REMICADE [Suspect]
     Indication: RHEUMATOID ARTHRITIS
     Dosage: 5TH INFUSION
     Route: 042
  3. PREDNISONE [Concomitant]
     Dosage: 20 YEARS
  4. METFORMIN HCL [Concomitant]
  5. GLYBURIDE [Concomitant]
  6. AVANDIA [Concomitant]
  7. CRESTOR [Concomitant]
  8. HYDROXYQUINOLINE [Concomitant]
  9. BENEDRYL [Concomitant]
     Indication: PREMEDICATION
     Route: 042
  10. TYLENOL (CAPLET) [Concomitant]
     Indication: PREMEDICATION
     Route: 042

REACTIONS (4)
  - FEMUR FRACTURE [None]
  - HIP ARTHROPLASTY [None]
  - PRURITUS [None]
  - RASH [None]
